FAERS Safety Report 7000062-1 (Version None)
Quarter: 2010Q3

REPORT INFORMATION
  Report Type: 
  Country: None (occurrence: None)
  Receive Date: 20100920
  Receipt Date: 20090805
  Transmission Date: 20110219
  Serious: No
  Sender: FDA-Public Use
  Company Number: US-ASTRAZENECA-2007UW12057

PATIENT
  Age: 63 Year
  Sex: Female
  Weight: 89.4 kg

DRUGS (10)
  1. SEROQUEL [Suspect]
     Indication: DEPRESSION
     Dosage: 25-100MG
     Route: 048
     Dates: start: 20030612, end: 20050927
  2. SEROQUEL [Suspect]
     Indication: POST-TRAUMATIC STRESS DISORDER
     Dosage: 25-100MG
     Route: 048
     Dates: start: 20030612, end: 20050927
  3. LEXAPRO [Concomitant]
     Dates: start: 20030101
  4. NEXIUM [Concomitant]
  5. TYLENOL [Concomitant]
  6. GLUCOPHAGE [Concomitant]
  7. GLIPIZIDE [Concomitant]
     Dates: end: 20060901
  8. CRESTOR [Concomitant]
  9. BYETTA [Concomitant]
     Dates: start: 20061003
  10. DETROL [Concomitant]
     Dates: start: 20040521

REACTIONS (34)
  - ABDOMINAL PAIN [None]
  - ARTHRALGIA [None]
  - BLOOD CHOLESTEROL INCREASED [None]
  - BLOOD TRIGLYCERIDES INCREASED [None]
  - CHANGE OF BOWEL HABIT [None]
  - COUGH [None]
  - DIARRHOEA [None]
  - DIVERTICULUM [None]
  - FIBROMYALGIA [None]
  - GASTROINTESTINAL MOTILITY DISORDER [None]
  - HYPERLIPIDAEMIA [None]
  - HYPERTENSION [None]
  - HYPOGLYCAEMIA [None]
  - IRRITABLE BOWEL SYNDROME [None]
  - JOINT EFFUSION [None]
  - LUMBAR SPINE FLATTENING [None]
  - LYMPHADENOPATHY [None]
  - METABOLIC SYNDROME [None]
  - MICTURITION URGENCY [None]
  - NECK PAIN [None]
  - NOCTURIA [None]
  - OROPHARYNGEAL PAIN [None]
  - OVARIAN CYST [None]
  - PELVIC FLOOR DYSSYNERGIA [None]
  - PYREXIA [None]
  - RECTAL POLYP [None]
  - REFLUX GASTRITIS [None]
  - SEBORRHOEIC KERATOSIS [None]
  - SLEEP DISORDER [None]
  - STRESS URINARY INCONTINENCE [None]
  - TRIGGER FINGER [None]
  - TYPE 2 DIABETES MELLITUS [None]
  - URETHRAL DISORDER [None]
  - WEIGHT INCREASED [None]
